FAERS Safety Report 9664720 (Version 1)
Quarter: 2013Q4

REPORT INFORMATION
  Report Type: Spontaneous
  Country: GB (occurrence: None)
  Receive Date: 20131031
  Receipt Date: 20131031
  Transmission Date: 20140711
  Serious: Yes (Disabling)
  Sender: FDA-Public Use
  Company Number: 2013-003400

PATIENT
  Age: 71 Year
  Sex: Male
  Weight: 64 kg

DRUGS (9)
  1. DORYX [Suspect]
     Dosage: TWO 100MG
     Dates: start: 20130108, end: 20130321
  2. HYPROMELLOSE (HYPROMELLOSE) [Concomitant]
  3. TIOTROPIUM (TIOTROPIUM) [Concomitant]
  4. AIROMIR  /00139501/ (SALBUTAMOL) [Concomitant]
  5. AMOXICILLIN  /00249602/ (AMOXICILLIN TRIHYDRATE) [Concomitant]
  6. PREDNISOLONE (PREDNISOLONE) [Concomitant]
  7. QVAR (BECLOMETASONE DIPROPIONATE) [Concomitant]
  8. SALMETEROL  /00954702/ (SALMETEROL XINAFOATE) [Concomitant]
  9. CLARITHROMYCIN (CLARITHROMYCIN) [Concomitant]

REACTIONS (1)
  - Dyspnoea [None]
